FAERS Safety Report 21675806 (Version 1)
Quarter: 2022Q4

REPORT INFORMATION
  Report Type: Spontaneous
  Country: FR (occurrence: None)
  Receive Date: 20221202
  Receipt Date: 20221202
  Transmission Date: 20230112
  Serious: Yes (Hospitalization)
  Sender: FDA-Public Use
  Company Number: 2022A392382

PATIENT
  Sex: Female

DRUGS (7)
  1. SYMBICORT [Suspect]
     Active Substance: BUDESONIDE\FORMOTEROL FUMARATE DIHYDRATE
     Indication: Bronchitis
     Dosage: 320/9 UG PER DOSE, TWO INHALATIONS TWO TIMES A DAY
     Route: 055
     Dates: start: 202211
  2. SYMBICORT [Suspect]
     Active Substance: BUDESONIDE\FORMOTEROL FUMARATE DIHYDRATE
     Indication: Dyspnoea
     Dosage: 320/9 UG PER DOSE, TWO INHALATIONS TWO TIMES A DAY
     Route: 055
     Dates: start: 202211
  3. SYMBICORT [Suspect]
     Active Substance: BUDESONIDE\FORMOTEROL FUMARATE DIHYDRATE
     Indication: Bronchitis
     Dosage: 320/9 UG PER DOSE, TWO INHALATIONS FOUR TIMES A DAY, FOR 20 DAYS
     Route: 055
     Dates: start: 20221120
  4. SYMBICORT [Suspect]
     Active Substance: BUDESONIDE\FORMOTEROL FUMARATE DIHYDRATE
     Indication: Dyspnoea
     Dosage: 320/9 UG PER DOSE, TWO INHALATIONS FOUR TIMES A DAY, FOR 20 DAYS
     Route: 055
     Dates: start: 20221120
  5. ALBUTEROL [Concomitant]
     Active Substance: ALBUTEROL
  6. CEFIXIME [Concomitant]
     Active Substance: CEFIXIME
  7. NASONEX [Concomitant]
     Active Substance: MOMETASONE FUROATE

REACTIONS (4)
  - Exposure during pregnancy [Unknown]
  - Uterine hypertonus [Unknown]
  - Off label use [Unknown]
  - Drug ineffective [Unknown]
